FAERS Safety Report 18563545 (Version 1)
Quarter: 2020Q4

REPORT INFORMATION
  Report Type: Spontaneous
  Country: NL (occurrence: NL)
  Receive Date: 20201201
  Receipt Date: 20201201
  Transmission Date: 20210114
  Serious: Yes (Hospitalization)
  Sender: FDA-Public Use
  Company Number: NL-TEVA-2020-NL-1853587

PATIENT
  Sex: Male
  Weight: 70 kg

DRUGS (4)
  1. RIBAVIRINE TABLET FO 200MG / BRAND NAME NOT SPECIFIED [Suspect]
     Active Substance: RIBAVIRIN
     Indication: HEPATITIS E
     Dosage: 2 X 2 TABLETS PER DAY (LATER 1 X 2, THEN ANOTHER 1X1 AND 1X 1/2), UNIT DOSE : 400 MG, THERAPY END DA
     Dates: start: 2017
  2. RISPERIDON TABLET OMHULD 2MG / RISPERDAL TABLET OMHULD 2MG [Concomitant]
     Dosage: 2 MG, THERAPY START DATE AND END DATE : ASKU
  3. TACROLIMUS CAPSULE 1MG / PROGRAFT CAPSULE 1MG [Concomitant]
     Dosage: 4 MILLIGRAM DAILY; 2X2MG, THERAPY START DATE AND END DATE : ASKU
  4. MYCOFENOLAAT MOFETIL TABLET 500MG / CELLCEPT TABLET 500MG [Concomitant]
     Dosage: 1500 MILLIGRAM DAILY; 2X750MG THERAPY START DATE AND END DATE : ASKU

REACTIONS (7)
  - Chills [Unknown]
  - Hyperacusis [Unknown]
  - Delusion of reference [Recovered/Resolved]
  - Paranoia [Recovered/Resolved]
  - Anxiety [Unknown]
  - Hostility [Unknown]
  - Speech disorder [Unknown]
